FAERS Safety Report 18755068 (Version 1)
Quarter: 2021Q1

REPORT INFORMATION
  Report Type: Spontaneous
  Country: US (occurrence: US)
  Receive Date: 20210115
  Receipt Date: 20210115
  Transmission Date: 20210419
  Serious: Yes (Hospitalization)
  Sender: FDA-Public Use
  Company Number: None

PATIENT
  Age: 79 Year
  Sex: Male
  Weight: 64.8 kg

DRUGS (13)
  1. DEXAMETHASONE. [Concomitant]
     Active Substance: DEXAMETHASONE
  2. OMEPRAZOLE. [Concomitant]
     Active Substance: OMEPRAZOLE
  3. POLYETHYLENE GLYCOL [Concomitant]
     Active Substance: POLYETHYLENE GLYCOLS
  4. ATORVASTATIN [Concomitant]
     Active Substance: ATORVASTATIN
  5. LEVOTHYROXINE. [Concomitant]
     Active Substance: LEVOTHYROXINE
  6. METOPROLOL. [Concomitant]
     Active Substance: METOPROLOL
  7. VALACYCLOVIR [Concomitant]
     Active Substance: VALACYCLOVIR HYDROCHLORIDE
  8. CLOPIDOGREL [Concomitant]
     Active Substance: CLOPIDOGREL BISULFATE
  9. BAMLANIVIMAB FOR EUA [Suspect]
     Active Substance: BAMLANIVIMAB
     Indication: COVID-19
     Route: 042
  10. AMOXICILLIN/CLAVULANATE [Concomitant]
     Active Substance: AMOXICILLIN\CLAVULANATE POTASSIUM
  11. ASPIRIN. [Concomitant]
     Active Substance: ASPIRIN
  12. ALBUTEROL. [Concomitant]
     Active Substance: ALBUTEROL
  13. GUAIFENESIN. [Concomitant]
     Active Substance: GUAIFENESIN

REACTIONS (2)
  - Cough [None]
  - Hypoxia [None]

NARRATIVE: CASE EVENT DATE: 20210108
